FAERS Safety Report 13219867 (Version 2)
Quarter: 2017Q1

REPORT INFORMATION
  Report Type: Report from Study
  Country: CA (occurrence: CA)
  Receive Date: 20170210
  Receipt Date: 20170223
  Transmission Date: 20170428
  Serious: Yes (Other)
  Sender: FDA-Public Use
  Company Number: CA-AMGEN-CANSL2017019851

PATIENT
  Age: 75 Year
  Sex: Female

DRUGS (7)
  1. MINERAL OIL. [Concomitant]
     Active Substance: MINERAL OIL
  2. IMOVANE [Concomitant]
     Active Substance: ZOPICLONE
  3. SENOKOT [Concomitant]
     Active Substance: SENNOSIDES
  4. VITAMIN D [Concomitant]
     Active Substance: CHOLECALCIFEROL
  5. LACTULOSE. [Concomitant]
     Active Substance: LACTULOSE
  6. PROLIA [Suspect]
     Active Substance: DENOSUMAB
     Indication: PRODUCT USED FOR UNKNOWN INDICATION
     Dosage: 60 MG/ML, UNK
     Route: 058
     Dates: start: 20140814
  7. CALCIUM CITRATE [Concomitant]
     Active Substance: CALCIUM CITRATE
     Dosage: 1200 MG, QD

REACTIONS (3)
  - Dental fistula [Unknown]
  - Tooth extraction [Unknown]
  - Dental implantation [Unknown]

NARRATIVE: CASE EVENT DATE: 2016
